FAERS Safety Report 8019169-5 (Version None)
Quarter: 2012Q1

REPORT INFORMATION
  Report Type: 
  Country: None (occurrence: None)
  Receive Date: 20120103
  Receipt Date: 20111228
  Transmission Date: 20120608
  Serious: Yes (Hospitalization, Other)
  Sender: FDA-Public Use
  Company Number: PL-JNJFOC-20111111259

PATIENT
  Age: 58 Year
  Sex: Female

DRUGS (30)
  1. DOXORUBICIN HCL [Suspect]
     Dosage: CYCLE 5
     Route: 042
  2. VINCRISTINE [Suspect]
     Dosage: CYCLE 2
     Route: 065
  3. PREDNISONE TAB [Suspect]
     Indication: DIFFUSE LARGE B-CELL LYMPHOMA
     Dosage: CYCLE 6
     Route: 065
  4. RITUXIMAB [Suspect]
     Indication: DIFFUSE LARGE B-CELL LYMPHOMA
     Dosage: CYCLE 6
     Route: 065
  5. RITUXIMAB [Suspect]
     Dosage: CYCLE 1
     Route: 065
  6. PREDNISONE TAB [Suspect]
     Dosage: CYCLE 2
     Route: 065
  7. DOXORUBICIN HCL [Suspect]
     Dosage: CYCLE 6
     Route: 042
  8. RITUXIMAB [Suspect]
     Dosage: CYCLE 2
     Route: 065
  9. CYCLOPHOSPHAMIDE [Suspect]
     Dosage: CYCLE 4
     Route: 065
  10. RITUXIMAB [Suspect]
     Dosage: CYCLE 3
     Route: 065
  11. CYCLOPHOSPHAMIDE [Suspect]
     Indication: DIFFUSE LARGE B-CELL LYMPHOMA
     Dosage: CYCLE 1
     Route: 065
  12. VINCRISTINE [Suspect]
     Indication: DIFFUSE LARGE B-CELL LYMPHOMA
     Dosage: CYCLE 5
     Route: 065
  13. VINCRISTINE [Suspect]
     Dosage: CYCLE 3
     Route: 065
  14. VINCRISTINE [Suspect]
     Dosage: CYCLE 1
     Route: 065
  15. DOXORUBICIN HCL [Suspect]
     Dosage: CYCLE 4
     Route: 042
  16. CYCLOPHOSPHAMIDE [Suspect]
     Dosage: CYCLE 3
     Route: 065
  17. CYCLOPHOSPHAMIDE [Suspect]
     Dosage: CYCLE 2
     Route: 065
  18. VINCRISTINE [Suspect]
     Dosage: CYCLE 6
     Route: 065
  19. DOXORUBICIN HCL [Suspect]
     Indication: DIFFUSE LARGE B-CELL LYMPHOMA
     Dosage: CYCLE 2
     Route: 042
  20. DOXORUBICIN HCL [Suspect]
     Dosage: CYCLE 1
     Route: 042
     Dates: start: 20100301
  21. RITUXIMAB [Suspect]
     Dosage: CYCLE 4
     Route: 065
  22. CYCLOPHOSPHAMIDE [Suspect]
     Dosage: CYCLE 6
     Route: 065
  23. CYCLOPHOSPHAMIDE [Suspect]
     Dosage: CYCLE 5
     Route: 065
  24. PREDNISONE TAB [Suspect]
     Dosage: CYCLE 5
     Route: 065
  25. PREDNISONE TAB [Suspect]
     Dosage: CYCLE 1
     Route: 065
  26. VINCRISTINE [Suspect]
     Dosage: CYCLE 4
     Route: 065
  27. PREDNISONE TAB [Suspect]
     Dosage: CYCLE 4
     Route: 065
  28. DOXORUBICIN HCL [Suspect]
     Dosage: CYCLE 3
     Route: 042
  29. RITUXIMAB [Suspect]
     Dosage: CYCLE 5
     Route: 065
  30. PREDNISONE TAB [Suspect]
     Dosage: CYCLE 3
     Route: 065

REACTIONS (2)
  - FEBRILE NEUTROPENIA [None]
  - INTERSTITIAL LUNG DISEASE [None]
